FAERS Safety Report 24420688 (Version 2)
Quarter: 2024Q4

REPORT INFORMATION
  Report Type: Spontaneous
  Country: CN (occurrence: CN)
  Receive Date: 20241010
  Receipt Date: 20241018
  Transmission Date: 20250114
  Serious: No
  Sender: ROCHE
  Company Number: CN-BoehringerIngelheim-2024-BI-026113

PATIENT
  Age: 54 Year
  Sex: Female
  Weight: 63.0 kg

DRUGS (2)
  1. ALTEPLASE [Suspect]
     Active Substance: ALTEPLASE
     Indication: Thrombolysis
     Dosage: (STANDARD DOSE 0.9 MG/KG) ?(10% OF TOTAL DOSE) WAS INTRAVENOUSLY INJECTED,
     Route: 042
     Dates: start: 20240505, end: 20240505
  2. ALTEPLASE [Suspect]
     Active Substance: ALTEPLASE
     Dosage: (STANDARD DOSE 0.9 MG/KG)  ?THE REMAINING (90% OF TOTAL DOSE) WAS PUMPED AT 45ML/HOUR
     Route: 042
     Dates: start: 20240505, end: 20240505

REACTIONS (2)
  - Mouth haemorrhage [Recovered/Resolved]
  - Gingival bleeding [Recovered/Resolved]

NARRATIVE: CASE EVENT DATE: 20240505
